FAERS Safety Report 13495512 (Version 1)
Quarter: 2017Q2

REPORT INFORMATION
  Report Type: Spontaneous
  Country: US (occurrence: US)
  Receive Date: 20170427
  Receipt Date: 20170427
  Transmission Date: 20170830
  Serious: No
  Sender: FDA-Public Use
  Company Number: None

PATIENT
  Age: 87 Year
  Sex: Female

DRUGS (1)
  1. HUMIRA [Suspect]
     Active Substance: ADALIMUMAB
     Indication: PSORIASIS
     Dosage: 1  PEN (40MG) EVERY OTHER WEEK SUBCUTANEOUS
     Route: 058
     Dates: start: 20170210, end: 20170417

REACTIONS (6)
  - Dizziness [None]
  - Immune system disorder [None]
  - Urinary tract infection [None]
  - Abdominal pain [None]
  - Epistaxis [None]
  - Pyrexia [None]

NARRATIVE: CASE EVENT DATE: 20170417
